FAERS Safety Report 8099608-4 (Version None)
Quarter: 2012Q1

REPORT INFORMATION
  Report Type: 
  Country: None (occurrence: None)
  Receive Date: 20120131
  Receipt Date: 20120124
  Transmission Date: 20120608
  Serious: Yes (Other)
  Sender: FDA-Public Use
  Company Number: RS-PFIZER INC-2011314784

PATIENT
  Age: 55 Year
  Sex: Male
  Weight: 83 kg

DRUGS (6)
  1. PREDNISONE [Concomitant]
     Indication: PROPHYLAXIS AGAINST TRANSPLANT REJECTION
     Dosage: 5 MG, 1X/DAY
     Route: 048
  2. PROPRANOLOL [Concomitant]
     Indication: HYPERSPLENISM
  3. RAPAMUNE [Suspect]
     Indication: PROPHYLAXIS AGAINST TRANSPLANT REJECTION
     Dosage: 1 MG, 1X/DAY
     Route: 048
     Dates: start: 20091120, end: 20110501
  4. PROPRANOLOL [Concomitant]
     Indication: PORTAL HYPERTENSION
     Dosage: 40 MG, 2X/DAY
     Route: 048
  5. FUROSEMIDE [Concomitant]
     Indication: OEDEMA
     Dosage: UNK
  6. IBUPROFEN [Concomitant]
     Indication: BACK PAIN
     Dosage: 200 MG, EVERY 8 HOURS

REACTIONS (1)
  - SCHIZOPHRENIA [None]
